FAERS Safety Report 22366081 (Version 1)
Quarter: 2023Q2

REPORT INFORMATION
  Report Type: Spontaneous
  Country: US (occurrence: US)
  Receive Date: 20230525
  Receipt Date: 20230525
  Transmission Date: 20230721
  Serious: No
  Sender: FDA-Public Use
  Company Number: US-SA-SAC20230524000853

PATIENT
  Age: 8 Year
  Sex: Male
  Weight: 33.1 kg

DRUGS (1)
  1. DUPIXENT [Suspect]
     Active Substance: DUPILUMAB
     Indication: Dermatitis atopic
     Dosage: 200MG EVERY 2 WEEKS
     Route: 058
     Dates: start: 20221228

REACTIONS (1)
  - Arthralgia [Unknown]
